FAERS Safety Report 16642856 (Version 1)
Quarter: 2019Q3

REPORT INFORMATION
  Report Type: Spontaneous
  Country: US (occurrence: US)
  Receive Date: 20190728
  Receipt Date: 20190728
  Transmission Date: 20191004
  Serious: Yes (Hospitalization)
  Sender: FDA-Public Use
  Company Number: None

PATIENT
  Age: 30 Year
  Sex: Female

DRUGS (1)
  1. CLOZAPINE. [Suspect]
     Active Substance: CLOZAPINE

REACTIONS (6)
  - Pyrexia [None]
  - C-reactive protein increased [None]
  - Troponin increased [None]
  - Tachycardia [None]
  - Myocarditis [None]
  - Red blood cell sedimentation rate increased [None]

NARRATIVE: CASE EVENT DATE: 20190408
